FAERS Safety Report 6675149-3 (Version None)
Quarter: 2010Q2

REPORT INFORMATION
  Report Type: 
  Country: None (occurrence: None)
  Receive Date: 20100409
  Receipt Date: 20100406
  Transmission Date: 20101027
  Serious: Yes (Other)
  Sender: FDA-Public Use
  Company Number: US-PFIZER INC-2010044176

PATIENT
  Sex: Female

DRUGS (2)
  1. GLYNASE [Suspect]
     Indication: DIABETES MELLITUS
     Dosage: UNK
  2. GLIBENCLAMIDE [Suspect]

REACTIONS (4)
  - BLOOD GLUCOSE INCREASED [None]
  - HEADACHE [None]
  - MALAISE [None]
  - MUSCLE SPASMS [None]
